FAERS Safety Report 24608580 (Version 1)
Quarter: 2024Q4

REPORT INFORMATION
  Report Type: Spontaneous
  Country: GB (occurrence: GB)
  Receive Date: 20241112
  Receipt Date: 20241112
  Transmission Date: 20250115
  Serious: Yes (Other)
  Sender: SAMSUNG BIOEPIS
  Company Number: None

PATIENT
  Age: 67 Year
  Sex: Female
  Weight: 78 kg

DRUGS (1)
  1. ETANERCEPT [Suspect]
     Active Substance: ETANERCEPT
     Indication: Rheumatoid arthritis
     Dosage: 50MG WEEKLY
     Route: 058
     Dates: start: 20240908, end: 20241015

REACTIONS (6)
  - Skin exfoliation [Recovering/Resolving]
  - Tongue haemorrhage [Recovering/Resolving]
  - Influenza [Recovered/Resolved]
  - Oral pain [Recovering/Resolving]
  - Weight decreased [Unknown]
  - Skin exfoliation [Unknown]

NARRATIVE: CASE EVENT DATE: 20240910
